FAERS Safety Report 5928977-3 (Version None)
Quarter: 2008Q4

REPORT INFORMATION
  Report Type: 
  Country: None (occurrence: None)
  Receive Date: 20081024
  Receipt Date: 20081015
  Transmission Date: 20090506
  Serious: Yes (Other)
  Sender: FDA-Public Use
  Company Number: US-ROCHE-592092

PATIENT
  Sex: Female
  Weight: 84.8 kg

DRUGS (9)
  1. CAPECITABINE [Suspect]
     Indication: BREAST CANCER
     Dosage: DOSE: 1500 MG IN THE MORMING, 1000 MG IN THE EVENING
     Route: 048
     Dates: start: 20080508
  2. AVASTIN [Concomitant]
  3. ZOMETA [Concomitant]
  4. DIOVAN [Concomitant]
  5. FISH OIL [Concomitant]
  6. COUMADIN [Concomitant]
  7. SYNTHROID [Concomitant]
  8. GLUTAMINE [Concomitant]
  9. VITAMIN B COMPLEX CAP [Concomitant]

REACTIONS (1)
  - DISEASE PROGRESSION [None]
